FAERS Safety Report 7956802-8 (Version None)
Quarter: 2011Q4

REPORT INFORMATION
  Report Type: 
  Country: None (occurrence: None)
  Receive Date: 20111205
  Receipt Date: 20111013
  Transmission Date: 20120403
  Serious: No
  Sender: FDA-Public Use
  Company Number: US-BAYER-2011-100326

PATIENT
  Age: 31 Year
  Sex: Female
  Weight: 57 kg

DRUGS (4)
  1. ALEVE (CAPLET) [Suspect]
     Indication: TOOTHACHE
     Dosage: 2 DF, ONCE
     Route: 048
     Dates: start: 20111012
  2. AMOXICILLIN [Concomitant]
  3. ALEVE (CAPLET) [Suspect]
     Dosage: 2 DF, ONCE
     Route: 048
     Dates: start: 20111013
  4. ALEVE (CAPLET) [Suspect]
     Dosage: 2 DF, ONCE
     Route: 048
     Dates: start: 20111013

REACTIONS (1)
  - HEADACHE [None]
